FAERS Safety Report 4749749-1 (Version None)
Quarter: 2005Q3

REPORT INFORMATION
  Report Type: 
  Country: None (occurrence: None)
  Receive Date: 20050822
  Receipt Date: 20050317
  Transmission Date: 20060218
  Serious: Yes (Hospitalization)
  Sender: FDA-Public Use
  Company Number: 200512511GDDC

PATIENT
  Age: 68 Year
  Sex: Female

DRUGS (9)
  1. ARAVA [Suspect]
     Indication: PSORIASIS
     Route: 048
     Dates: start: 20040801, end: 20050101
  2. DICLOFENAC [Concomitant]
     Route: 048
     Dates: end: 20050101
  3. TRAMADOLE [Concomitant]
     Route: 048
     Dates: end: 20050301
  4. MAPROTILINE [Concomitant]
     Route: 048
     Dates: start: 20041201, end: 20050301
  5. ALENDRONIC ACID [Concomitant]
     Route: 048
     Dates: start: 20040801, end: 20050301
  6. CA++ [Concomitant]
     Route: 048
     Dates: end: 20050301
  7. VITAMIN D3 [Concomitant]
     Dosage: DOSE: UNK
     Route: 048
     Dates: end: 20050301
  8. METHOTREXATE [Concomitant]
     Dosage: DOSE: UNK
     Dates: end: 20040801
  9. BETAMETASONE [Concomitant]
     Dosage: DOSE: UNK; ROUTE: INTRAARTICULAR, INTRASYNOVIAL
     Route: 050
     Dates: start: 20040801, end: 20041101

REACTIONS (2)
  - ARTHRALGIA [None]
  - ASEPTIC NECROSIS BONE [None]
